FAERS Safety Report 10589319 (Version 1)
Quarter: 2014Q4

REPORT INFORMATION
  Report Type: Spontaneous
  Country: SE (occurrence: SE)
  Receive Date: 20141118
  Receipt Date: 20141118
  Transmission Date: 20150529
  Serious: Yes (Death, Other)
  Sender: FDA-Public Use
  Company Number: SE-AMGEN-SWESP2014088922

PATIENT
  Age: 30 Year
  Sex: Female

DRUGS (18)
  1. FUROSEMID RECIP [Concomitant]
     Dosage: UNK
  2. VECTIBIX [Suspect]
     Active Substance: PANITUMUMAB
     Indication: PRODUCT USED FOR UNKNOWN INDICATION
     Dosage: 20 MG/ML, ONE TIME
     Route: 065
     Dates: start: 20140115
  3. SPIRONOLAKTON PFIZER [Concomitant]
     Active Substance: SPIRONOLACTONE
     Dosage: UNK
  4. DAIVOBET [Concomitant]
     Active Substance: BETAMETHASONE DIPROPIONATE\CALCIPOTRIENE
     Dosage: UNK
  5. BETNOVAT                           /00008503/ [Concomitant]
     Dosage: UNK
  6. REVATIO [Concomitant]
     Active Substance: SILDENAFIL CITRATE
     Dosage: UNK
  7. HALDOL [Concomitant]
     Active Substance: HALOPERIDOL
     Dosage: UNK
  8. DORMICUM                           /00634103/ [Concomitant]
     Dosage: UNK
  9. PRIMPERAN [Concomitant]
     Active Substance: METOCLOPRAMIDE HYDROCHLORIDE
     Dosage: UNK
  10. BISOPROLOL ORIFARM [Concomitant]
     Dosage: UNK
  11. BETAPRED [Concomitant]
     Active Substance: BETAMETHASONE SODIUM PHOSPHATE
     Dosage: UNK
  12. OXASCAND [Concomitant]
     Active Substance: OXAZEPAM
     Dosage: UNK
  13. OMEPRAZOL PENSA                    /00661201/ [Concomitant]
     Dosage: UNK
  14. ONDANSETRON TEVA                   /00955301/ [Concomitant]
     Dosage: UNK
  15. INNOHEP [Concomitant]
     Active Substance: TINZAPARIN SODIUM
     Dosage: UNK
  16. MIRTAZAPIN KRKA [Concomitant]
     Active Substance: MIRTAZAPINE
     Dosage: UNK
  17. ROBINUL [Concomitant]
     Active Substance: GLYCOPYRROLATE
     Dosage: UNK
  18. MORFIN MEDA [Concomitant]
     Active Substance: MORPHINE SULFATE
     Dosage: UNK

REACTIONS (3)
  - General physical health deterioration [Unknown]
  - Multi-organ failure [Unknown]
  - Arrhythmia [Fatal]

NARRATIVE: CASE EVENT DATE: 20140115
